FAERS Safety Report 15270376 (Version 1)
Quarter: 2018Q3

REPORT INFORMATION
  Report Type: Spontaneous
  Country: US (occurrence: US)
  Receive Date: 20180813
  Receipt Date: 20180813
  Transmission Date: 20181010
  Serious: No
  Sender: FDA-Public Use
  Company Number: US-PFIZER INC-2018318386

PATIENT
  Sex: Female
  Weight: 57 kg

DRUGS (1)
  1. TETRACYCLINE HCL [Suspect]
     Active Substance: TETRACYCLINE HYDROCHLORIDE
     Indication: PHARYNGITIS STREPTOCOCCAL
     Dosage: UNK

REACTIONS (1)
  - Tooth discolouration [Unknown]
